FAERS Safety Report 10213376 (Version 1)
Quarter: 2014Q2

REPORT INFORMATION
  Report Type: Spontaneous
  Country: US (occurrence: None)
  Receive Date: 20140529
  Receipt Date: 20140529
  Transmission Date: 20141212
  Serious: Yes (Death, Hospitalization, Other)
  Sender: FDA-Public Use
  Company Number: KAD201405-000516

PATIENT
  Age: 52 Year
  Sex: Female

DRUGS (12)
  1. RIBASPHERE (RIBAVIRIN) [Suspect]
     Indication: CHRONIC HEPATITIS C
     Route: 048
     Dates: start: 20131217, end: 20140314
  2. SOVALDI [Suspect]
     Indication: CHRONIC HEPATITIS C
     Route: 048
     Dates: start: 20131216, end: 20140314
  3. ESCITALOPRAM OXALATE (ESCITALOPRAM OXALATE) [Concomitant]
  4. HYOSCYAMINE SULFATE (HYOSCYAMINE SULFATE) [Concomitant]
  5. METHADONE HCL [Concomitant]
  6. NEOMYCIN SULFATE [Concomitant]
  7. ONDANSETRON HCL [Concomitant]
  8. OXYCODONE HCL [Concomitant]
  9. PANTOPRAZOLE SODIUM (PANTOPRAZOLE SODIUM SESQUIHYDRATE) [Concomitant]
  10. PROMETHAZINE HCL [Concomitant]
  11. PROPRANOLOL HCL [Concomitant]
  12. SUCRALFATE [Concomitant]

REACTIONS (24)
  - Nausea [None]
  - Vomiting [None]
  - Abdominal distension [None]
  - Abdominal pain [None]
  - Chronic hepatic failure [None]
  - Ventricular tachycardia [None]
  - Bacteraemia [None]
  - Gastrointestinal haemorrhage [None]
  - Respiratory failure [None]
  - Renal failure acute [None]
  - Disseminated intravascular coagulation [None]
  - Acute myocardial infarction [None]
  - Thrombocytopenia [None]
  - Coagulopathy [None]
  - Anaemia [None]
  - Electrolyte imbalance [None]
  - Haematemesis [None]
  - Mental status changes [None]
  - Metabolic acidosis [None]
  - Hyperkalaemia [None]
  - Atelectasis [None]
  - Septic shock [None]
  - Multi-organ failure [None]
  - Staphylococcal infection [None]
